FAERS Safety Report 6228115-6 (Version None)
Quarter: 2009Q2

REPORT INFORMATION
  Report Type: 
  Country: None (occurrence: None)
  Receive Date: 20090610
  Receipt Date: 20090610
  Transmission Date: 20091009
  Serious: Yes (Life-Threatening, Hospitalization)
  Sender: FDA-Public Use
  Company Number: None

PATIENT
  Age: 63 Year
  Sex: Female
  Weight: 75.9775 kg

DRUGS (10)
  1. IXABEPILONE FOR INJECTION 15 MG BRIDTOL MYERS SQUIBB [Suspect]
     Indication: BREAST CANCER
     Dosage: 40 MG/M2 EVERY 21 DAYS IV
     Route: 042
     Dates: start: 20090603, end: 20090603
  2. IXABEPILONE FOR INJECTION 15 MG BRIDTOL MYERS SQUIBB [Suspect]
     Indication: METAPLASIA
     Dosage: 40 MG/M2 EVERY 21 DAYS IV
     Route: 042
     Dates: start: 20090603, end: 20090603
  3. DASTANIB 50 MG BRISTOL MYERS SQUIBB [Suspect]
     Indication: BREAST CANCER
     Dosage: 100 MG EVERY DAY PO
     Route: 048
     Dates: start: 20090603, end: 20090607
  4. DASTANIB 50 MG BRISTOL MYERS SQUIBB [Suspect]
     Indication: METAPLASIA
     Dosage: 100 MG EVERY DAY PO
     Route: 048
     Dates: start: 20090603, end: 20090607
  5. IXABEPILONE [Concomitant]
  6. IXABEPILONE [Concomitant]
  7. DASATANIB [Concomitant]
  8. BENADRYL [Concomitant]
  9. FAMOTIDINE [Concomitant]
  10. ODANSETRON [Concomitant]

REACTIONS (9)
  - CHEST PAIN [None]
  - DEHYDRATION [None]
  - DIARRHOEA [None]
  - FATIGUE [None]
  - FLUID INTAKE REDUCED [None]
  - HYPOPHAGIA [None]
  - NAUSEA [None]
  - NEUTROPENIA [None]
  - VOMITING [None]
